FAERS Safety Report 5912050-4 (Version None)
Quarter: 2008Q4

REPORT INFORMATION
  Report Type: 
  Country: None (occurrence: None)
  Receive Date: 20081006
  Receipt Date: 20081001
  Transmission Date: 20090506
  Serious: Yes (Death, Hospitalization)
  Sender: FDA-Public Use
  Company Number: 2008JP004712

PATIENT
  Age: 30 Year
  Sex: Male

DRUGS (6)
  1. TACROLIMUS [Suspect]
     Indication: LIVER TRANSPLANT
  2. URBASON (METHYLPREDNISOLONE ACETATE) [Concomitant]
  3. CELLCEPT [Concomitant]
  4. GANCICLOVIR [Concomitant]
  5. HEPTODIN (LAMIVUDINE) [Concomitant]
  6. HBIG (IMMUNOGLOBULIN ANTIHEPATITIS B) [Concomitant]

REACTIONS (4)
  - ALANINE AMINOTRANSFERASE INCREASED [None]
  - BLOOD BILIRUBIN INCREASED [None]
  - BLOOD CREATININE INCREASED [None]
  - LUNG INFECTION [None]
